FAERS Safety Report 5631329-7 (Version None)
Quarter: 2008Q1

REPORT INFORMATION
  Report Type: 
  Country: None (occurrence: None)
  Receive Date: 20080212
  Receipt Date: 20080205
  Transmission Date: 20080703
  Serious: Yes (Death, Other)
  Sender: FDA-Public Use
  Company Number: 163-21880-08010157

PATIENT
  Age: 72 Year
  Sex: Female

DRUGS (4)
  1. REVLIMID [Suspect]
     Indication: MANTLE CELL LYMPHOMA
     Dosage: 15 MG, X21 DAYS EVERY 28 DAYS, ORAL; 25 MG, QD X21 DAYS, ORAL
     Route: 048
     Dates: start: 20070601, end: 20070101
  2. REVLIMID [Suspect]
     Indication: NON-HODGKIN'S LYMPHOMA
     Dosage: 15 MG, X21 DAYS EVERY 28 DAYS, ORAL; 25 MG, QD X21 DAYS, ORAL
     Route: 048
     Dates: start: 20070601, end: 20070101
  3. REVLIMID [Suspect]
     Indication: MANTLE CELL LYMPHOMA
     Dosage: 15 MG, X21 DAYS EVERY 28 DAYS, ORAL; 25 MG, QD X21 DAYS, ORAL
     Route: 048
     Dates: start: 20070101, end: 20070701
  4. REVLIMID [Suspect]
     Indication: NON-HODGKIN'S LYMPHOMA
     Dosage: 15 MG, X21 DAYS EVERY 28 DAYS, ORAL; 25 MG, QD X21 DAYS, ORAL
     Route: 048
     Dates: start: 20070101, end: 20070701

REACTIONS (7)
  - DISEASE PROGRESSION [None]
  - DYSPNOEA [None]
  - FATIGUE [None]
  - LEUKOCYTOSIS [None]
  - NON-HODGKIN'S LYMPHOMA [None]
  - PROLYMPHOCYTIC LEUKAEMIA [None]
  - THROMBOCYTOPENIA [None]
